FAERS Safety Report 22385403 (Version 1)
Quarter: 2023Q2

REPORT INFORMATION
  Report Type: Report from Study
  Country: NL (occurrence: NL)
  Receive Date: 20230530
  Receipt Date: 20230530
  Transmission Date: 20230721
  Serious: Yes (Disabling)
  Sender: FDA-Public Use
  Company Number: NL-002147023-NVSC2023NL110190

PATIENT
  Age: 72 Year
  Sex: Male
  Weight: 65 kg

DRUGS (5)
  1. INCLISIRAN [Suspect]
     Active Substance: INCLISIRAN
     Indication: Reaction to excipient
     Dosage: 284 MG (ONCE PER 6 MONTHS EXCEPT FOR BOOSTER AFTER 3 MONTHS)
     Route: 058
     Dates: start: 20230214, end: 20230516
  2. ISOSORBIDE DINITRATE [Concomitant]
     Active Substance: ISOSORBIDE DINITRATE
     Indication: Product used for unknown indication
     Dosage: 5 MG, PRN
     Route: 060
  3. ISOSORBIDE MONONITRATE [Concomitant]
     Active Substance: ISOSORBIDE MONONITRATE
     Indication: Product used for unknown indication
     Dosage: 25 MG, QD
     Route: 065
  4. FLUTICASONPROPIONAAT FOCUS [Concomitant]
     Indication: Product used for unknown indication
     Dosage: 2 X 50MCG (1 X PER DAY IN BOTH NOSTRILS IN THE MORNING)
     Route: 045
  5. ASPIRIN [Concomitant]
     Active Substance: ASPIRIN
     Indication: Product used for unknown indication
     Dosage: 80 MG, QD
     Route: 065

REACTIONS (3)
  - Myalgia [Recovering/Resolving]
  - Hypersomnia [Recovering/Resolving]
  - Off label use [Unknown]

NARRATIVE: CASE EVENT DATE: 20230410
